FAERS Safety Report 6949207-X (Version None)
Quarter: 2010Q3

REPORT INFORMATION
  Report Type: 
  Country: None (occurrence: None)
  Receive Date: 20100828
  Receipt Date: 20091208
  Transmission Date: 20110219
  Serious: No
  Sender: FDA-Public Use
  Company Number: US-ABBOTT-09P-163-0613967-00

PATIENT
  Age: 61 Year
  Sex: Female
  Weight: 84.444 kg

DRUGS (9)
  1. NIASPAN [Suspect]
     Indication: HIGH DENSITY LIPOPROTEIN DECREASED
     Dosage: DAILY IN EVENING
     Route: 048
     Dates: end: 20091204
  2. NIASPAN [Suspect]
     Indication: BLOOD TRIGLYCERIDES INCREASED
     Dosage: 2 PILLS DAILY IN EVENING AFTER DINNER
     Route: 048
     Dates: start: 20091204
  3. ASPIRIN [Concomitant]
     Indication: PRODUCT USED FOR UNKNOWN INDICATION
     Dosage: 325MG IN AM, AND 81 MG AT NIGHT
     Route: 048
  4. GLYBURIDE [Concomitant]
     Indication: DIABETES MELLITUS
     Dosage: DAILY
  5. METFORMIN [Concomitant]
     Indication: DIABETES MELLITUS
     Dosage: DAILY
  6. PRAVASTATIN [Concomitant]
     Indication: PRODUCT USED FOR UNKNOWN INDICATION
     Dosage: DAILY AT HOUR OF SLEEP
     Route: 048
  7. OMEPRAZOLE [Concomitant]
     Indication: GASTRIC DISORDER
  8. LISINOPRIL [Concomitant]
     Indication: HYPERTENSION
     Dosage: DAILY
     Route: 048
  9. METOPROLOL [Concomitant]
     Indication: CARDIAC DISORDER
     Dosage: DAILY
     Route: 048

REACTIONS (5)
  - BLOOD GLUCOSE INCREASED [None]
  - ERYTHEMA [None]
  - FEELING HOT [None]
  - PARAESTHESIA [None]
  - PRURITUS [None]
